FAERS Safety Report 11772406 (Version 1)
Quarter: 2015Q4

REPORT INFORMATION
  Report Type: Report from Study
  Country: NL (occurrence: NL)
  Receive Date: 20151124
  Receipt Date: 20151124
  Transmission Date: 20160304
  Serious: Yes (Hospitalization)
  Sender: FDA-Public Use
  Company Number: PHHY2015NL120174

PATIENT
  Sex: Female

DRUGS (1)
  1. SANDOSTATIN LAR DEPOT [Suspect]
     Active Substance: OCTREOTIDE ACETATE
     Indication: NEUROENDOCRINE TUMOUR
     Dosage: 10 MG, QMO (1X EVERY 4 WEEKS)
     Route: 030
     Dates: start: 19990101

REACTIONS (2)
  - Cholelithiasis [Recovered/Resolved with Sequelae]
  - Porcelain gallbladder [Recovered/Resolved]

NARRATIVE: CASE EVENT DATE: 20150101
